FAERS Safety Report 14444733 (Version 10)
Quarter: 2020Q1

REPORT INFORMATION
  Report Type: Report from Study
  Country: IE (occurrence: IE)
  Receive Date: 20180126
  Receipt Date: 20200225
  Transmission Date: 20200409
  Serious: Yes (Hospitalization)
  Sender: FDA-Public Use
  Company Number: IE-ROCHE-2043639

PATIENT
  Age: 65 Year
  Sex: Female
  Weight: 67 kg

DRUGS (31)
  1. XANAX [Concomitant]
     Active Substance: ALPRAZOLAM
     Route: 048
     Dates: start: 200701
  2. XALATAN [Concomitant]
     Active Substance: LATANOPROST
     Route: 047
     Dates: start: 200001
  3. PARACETAMOL [Concomitant]
     Active Substance: ACETAMINOPHEN
     Indication: INFUSION RELATED REACTION
     Route: 048
     Dates: start: 20171123, end: 20171123
  4. PARACETAMOL [Concomitant]
     Active Substance: ACETAMINOPHEN
     Route: 048
     Dates: start: 20180117
  5. CO-AMOXICLAV [AMOXICILLIN;CLAVULANATE POTASSIUM] [Concomitant]
     Active Substance: AMOXICILLIN\CLAVULANATE POTASSIUM
     Indication: INFUSION RELATED REACTION
     Route: 048
     Dates: start: 20171125, end: 20171127
  6. LACTULOSE. [Concomitant]
     Active Substance: LACTULOSE
     Indication: INFUSION RELATED REACTION
     Route: 065
     Dates: start: 20171125, end: 20171125
  7. PERINDOPRIL [Concomitant]
     Active Substance: PERINDOPRIL
     Route: 048
     Dates: start: 201401
  8. ONDANSETRON [Concomitant]
     Active Substance: ONDANSETRON
     Indication: INFUSION RELATED REACTION
     Route: 042
     Dates: start: 20171123, end: 20171123
  9. CO-AMOXICLAV [AMOXICILLIN;CLAVULANATE POTASSIUM] [Concomitant]
     Active Substance: AMOXICILLIN\CLAVULANATE POTASSIUM
     Route: 048
     Dates: start: 20171128, end: 20171201
  10. INNOHEP [Concomitant]
     Active Substance: TINZAPARIN SODIUM
     Indication: PELVIC VENOUS THROMBOSIS
     Route: 058
     Dates: start: 20180410
  11. METHYLPREDNISOLONE. [Concomitant]
     Active Substance: METHYLPREDNISOLONE
     Indication: COLITIS
     Route: 042
     Dates: start: 20180627, end: 20180703
  12. ATEZOLIZUMAB. [Suspect]
     Active Substance: ATEZOLIZUMAB
     Indication: NEOPLASM
     Dosage: DAY 1 OF CYCLE 1?MOST RECENT DOSE ON 23/NOV/2017, AT 13.15?CYCLE 4 WAS CURRENTLY ON HOLD
     Route: 042
     Dates: start: 20171013
  13. CEFOTAXIME [Concomitant]
     Active Substance: CEFOTAXIME SODIUM
     Indication: INFUSION RELATED REACTION
     Route: 042
     Dates: start: 20171123, end: 20171125
  14. CLEXANE [Concomitant]
     Active Substance: ENOXAPARIN SODIUM
     Route: 058
     Dates: start: 20171215, end: 20171228
  15. VANCOMYCIN [Concomitant]
     Active Substance: VANCOMYCIN
     Indication: INFUSION RELATED REACTION
     Route: 042
     Dates: start: 20171124, end: 20171125
  16. PAROX [PAROXETINE HYDROCHLORIDE] [Concomitant]
     Route: 048
     Dates: start: 201301
  17. VANCOMYCIN [Concomitant]
     Active Substance: VANCOMYCIN
     Route: 042
     Dates: start: 20171220, end: 20171220
  18. PARACETAMOL [Concomitant]
     Active Substance: ACETAMINOPHEN
     Indication: FEBRILE NEUTROPENIA
     Route: 048
     Dates: start: 20171215, end: 20171220
  19. MOVIPREP [Concomitant]
     Active Substance: ASCORBIC ACID\POLYETHYLENE GLYCOL 3350\POTASSIUM CHLORIDE\SODIUM ASCORBATE\SODIUM CHLORIDE\SODIUM SULFATE
     Dosage: 1 UNIT
     Route: 048
     Dates: start: 20180626, end: 20180627
  20. ZIRTEK [Concomitant]
     Active Substance: CETIRIZINE HYDROCHLORIDE
     Indication: PRURITUS
     Route: 048
     Dates: start: 20180329
  21. DUPHALAC [Concomitant]
     Active Substance: LACTULOSE
     Indication: CONSTIPATION
     Route: 048
     Dates: start: 20180601
  22. PANTOPRAZOLE [Concomitant]
     Active Substance: PANTOPRAZOLE
     Indication: COLITIS
     Route: 048
     Dates: start: 20180627, end: 20180705
  23. PIRITON [Concomitant]
     Active Substance: CHLORPHENIRAMINE MALEATE
     Route: 048
     Dates: start: 20180117
  24. PALEXIA [Concomitant]
     Active Substance: TAPENTADOL HYDROCHLORIDE
     Route: 048
     Dates: start: 201609
  25. HYDROCORTISONE. [Concomitant]
     Active Substance: HYDROCORTISONE
     Indication: INFUSION RELATED REACTION
     Route: 042
     Dates: start: 20171123, end: 20171123
  26. PIRITON [Concomitant]
     Active Substance: CHLORPHENIRAMINE MALEATE
     Indication: INFUSION RELATED REACTION
     Route: 042
     Dates: start: 20171123, end: 20171123
  27. PREDNISOLONE. [Concomitant]
     Active Substance: PREDNISOLONE
     Route: 048
     Dates: start: 20171225, end: 20171229
  28. VANCOMYCIN [Concomitant]
     Active Substance: VANCOMYCIN
     Indication: INFUSION RELATED REACTION
     Route: 042
     Dates: start: 20171123, end: 20171123
  29. VANCOMYCIN [Concomitant]
     Active Substance: VANCOMYCIN
     Route: 042
     Dates: start: 20171124, end: 20171125
  30. SENNA [Concomitant]
     Active Substance: SENNA LEAF\SENNOSIDES\SENNOSIDES A AND B
     Indication: CONSTIPATION
     Route: 048
     Dates: start: 20180530
  31. PREDNISOLONE. [Concomitant]
     Active Substance: PREDNISOLONE
     Indication: COLITIS
     Route: 048
     Dates: start: 20170704

REACTIONS (2)
  - Stomatitis [Recovered/Resolved]
  - Febrile neutropenia [Recovered/Resolved]

NARRATIVE: CASE EVENT DATE: 20171214
